FAERS Safety Report 6439996-5 (Version None)
Quarter: 2009Q4

REPORT INFORMATION
  Report Type: 
  Country: None (occurrence: None)
  Receive Date: 20091113
  Receipt Date: 20091110
  Transmission Date: 20100525
  Serious: Yes (Hospitalization)
  Sender: FDA-Public Use
  Company Number: FI-WYE-G04866309

PATIENT
  Sex: Female

DRUGS (2)
  1. EFFEXOR [Suspect]
     Indication: DEPRESSION
     Route: 048
  2. ETHANOL [Interacting]
     Dosage: UNSPECIFIED DOSE AND FREQUENCY

REACTIONS (3)
  - ALCOHOL INTERACTION [None]
  - DEPRESSED LEVEL OF CONSCIOUSNESS [None]
  - PULSE PRESSURE DECREASED [None]
